FAERS Safety Report 25200925 (Version 1)
Quarter: 2025Q2

REPORT INFORMATION
  Report Type: Spontaneous
  Country: US (occurrence: US)
  Receive Date: 20250415
  Receipt Date: 20250415
  Transmission Date: 20250717
  Serious: Yes (Other)
  Sender: ABBVIE
  Company Number: US-ABBVIE-6228908

PATIENT
  Age: 40 Year
  Sex: Female

DRUGS (1)
  1. LINZESS [Suspect]
     Active Substance: LINACLOTIDE
     Indication: Constipation
     Route: 048
     Dates: start: 2022

REACTIONS (3)
  - Loss of consciousness [Recovered/Resolved]
  - Tooth extraction [Recovering/Resolving]
  - Tooth fracture [Recovering/Resolving]

NARRATIVE: CASE EVENT DATE: 20250328
